FAERS Safety Report 5726293-6 (Version None)
Quarter: 2008Q2

REPORT INFORMATION
  Report Type: 
  Country: None (occurrence: None)
  Receive Date: 20080502
  Receipt Date: 20080422
  Transmission Date: 20081010
  Serious: Yes (Hospitalization)
  Sender: FDA-Public Use
  Company Number: US-AMGEN-US265325

PATIENT
  Sex: Female

DRUGS (7)
  1. PANITUMUMAB [Suspect]
     Indication: COLORECTAL CANCER
     Route: 042
     Dates: start: 20070703
  2. LISINOPRIL [Suspect]
     Route: 065
  3. PRAZOSIN HCL [Suspect]
     Route: 065
  4. VERAPAMIL [Suspect]
     Route: 065
  5. IRINOTECAN HCL [Concomitant]
     Route: 065
  6. FLUOROURACIL [Concomitant]
     Route: 065
  7. LEUCOVORIN CALCIUM [Concomitant]
     Route: 065

REACTIONS (3)
  - HYPOKALAEMIA [None]
  - HYPOMAGNESAEMIA [None]
  - MENTAL DISORDER [None]
